FAERS Safety Report 8230686-5 (Version None)
Quarter: 2012Q1

REPORT INFORMATION
  Report Type: 
  Country: None (occurrence: None)
  Receive Date: 20120323
  Receipt Date: 20120314
  Transmission Date: 20120608
  Serious: Yes (Other)
  Sender: FDA-Public Use
  Company Number: MX-SANOFI-AVENTIS-2012SA017693

PATIENT
  Age: 57 Year
  Sex: Female
  Weight: 86 kg

DRUGS (2)
  1. LANTUS [Suspect]
     Indication: TYPE 2 DIABETES MELLITUS
     Route: 058
     Dates: start: 20090101
  2. LOSARTAN POTASSIUM [Concomitant]
     Route: 048
     Dates: start: 20090101

REACTIONS (5)
  - HYPERGLYCAEMIA [None]
  - PAIN IN EXTREMITY [None]
  - DIABETIC NEUROPATHY [None]
  - INSOMNIA [None]
  - HYPOAESTHESIA [None]
